FAERS Safety Report 10089128 (Version 2)
Quarter: 2014Q2

REPORT INFORMATION
  Report Type: Other
  Country: PT (occurrence: PT)
  Receive Date: 20140421
  Receipt Date: 20140428
  Transmission Date: 20141212
  Serious: Yes (Death, Life-Threatening, Hospitalization, Other)
  Sender: FDA-Public Use
  Company Number: PT-MPIJNJ-2014JNJ002066

PATIENT
  Sex: 0

DRUGS (8)
  1. VELCADE [Suspect]
     Indication: PLASMA CELL MYELOMA
     Dosage: 2 MG, UNK
     Route: 065
     Dates: start: 201210, end: 20130111
  2. DEXAMETHASONE [Concomitant]
     Indication: PLASMA CELL MYELOMA
     Dosage: UNK
     Dates: start: 201210, end: 20130111
  3. PAMIDRONATE DISODIUM [Concomitant]
     Indication: PLASMA CELL MYELOMA
     Dosage: UNK
     Dates: start: 201211
  4. VOLTAREN                           /00372301/ [Concomitant]
     Indication: PAIN
  5. RELMUS [Concomitant]
     Indication: PAIN
  6. OMEPRAZOLE [Concomitant]
  7. LAMOTRIGINA [Concomitant]
     Indication: DEPRESSION
  8. VENLAFAXINE [Concomitant]
     Indication: DEPRESSION

REACTIONS (10)
  - Cardiac failure [Fatal]
  - Multi-organ failure [Fatal]
  - Congestive cardiomyopathy [Fatal]
  - Respiratory failure [Fatal]
  - Acute hepatic failure [Fatal]
  - Dyspnoea [Fatal]
  - Fatigue [Fatal]
  - Renal failure [Fatal]
  - Aggression [Unknown]
  - Depression [Unknown]
